FAERS Safety Report 19814777 (Version 1)
Quarter: 2021Q3

REPORT INFORMATION
  Report Type: Spontaneous
  Country: US (occurrence: US)
  Receive Date: 20210908
  Receipt Date: 20210908
  Transmission Date: 20211014
  Serious: No
  Sender: FDA-Public Use
  Company Number: None

PATIENT
  Age: 42 Year
  Sex: Male

DRUGS (1)
  1. SPRYCEL [Suspect]
     Active Substance: DASATINIB
     Dosage: TREATMENT START DATE: 19?SEP?2021
     Route: 048

REACTIONS (1)
  - Vomiting [None]

NARRATIVE: CASE EVENT DATE: 20210904
